FAERS Safety Report 23542848 (Version 1)
Quarter: 2024Q1

REPORT INFORMATION
  Report Type: Report from Study
  Country: CA (occurrence: CA)
  Receive Date: 20240220
  Receipt Date: 20240220
  Transmission Date: 20240410
  Serious: Yes (Other)
  Sender: FDA-Public Use
  Company Number: CA-002147023-NVSC2023CA007021

PATIENT
  Age: 75 Year
  Sex: Female

DRUGS (1)
  1. HYRIMOZ [Suspect]
     Active Substance: ADALIMUMAB-ADAZ
     Indication: Psoriasis
     Dosage: 40 MG
     Route: 058
     Dates: start: 20220508

REACTIONS (14)
  - Rectal haemorrhage [Unknown]
  - Injection site hyperaesthesia [Unknown]
  - Psoriasis [Unknown]
  - Pruritus [Unknown]
  - Blood iron decreased [Unknown]
  - Back pain [Recovered/Resolved]
  - Arthralgia [Recovered/Resolved]
  - Fatigue [Recovered/Resolved]
  - Mucous stools [Unknown]
  - Diarrhoea [Unknown]
  - Abdominal pain [Unknown]
  - Pruritus [Unknown]
  - Alopecia [Unknown]
  - Skin plaque [Unknown]

NARRATIVE: CASE EVENT DATE: 20231201
